FAERS Safety Report 21610828 (Version 1)
Quarter: 2022Q4

REPORT INFORMATION
  Report Type: Spontaneous
  Country: US (occurrence: None)
  Receive Date: 20221117
  Receipt Date: 20221117
  Transmission Date: 20230112
  Serious: Yes (Hospitalization)
  Sender: FDA-Public Use
  Company Number: US-FARMAPROD-202211-2207

PATIENT
  Age: 72 Year
  Sex: Female

DRUGS (24)
  1. OXERVATE [Suspect]
     Active Substance: CENEGERMIN-BKBJ
     Indication: Neurotrophic keratopathy
     Route: 047
     Dates: start: 20221103
  2. SOLU-MEDROL [Concomitant]
     Active Substance: METHYLPREDNISOLONE SODIUM SUCCINATE
     Dosage: DOSAGE SUSTAINED, DOSE PACK
  3. PEPCID [Concomitant]
     Active Substance: FAMOTIDINE
  4. VITAMINS [Concomitant]
     Active Substance: VITAMINS
  5. REFRESH PLUS [Concomitant]
     Active Substance: CARBOXYMETHYLCELLULOSE SODIUM
  6. PROCTOFOAM [Concomitant]
     Active Substance: PRAMOXINE HYDROCHLORIDE
  7. MIRALAX [Concomitant]
     Active Substance: POLYETHYLENE GLYCOL 3350
     Dosage: GRAM/DOSE
  8. NITROSTAT [Concomitant]
     Active Substance: NITROGLYCERIN
  9. TASIGNA [Concomitant]
     Active Substance: NILOTINIB
  10. MORPHINE SULFATE [Concomitant]
     Active Substance: MORPHINE SULFATE
     Dosage: EXTENDED RELEASE, SUSTAINED ACTION
  11. SYNTHROID [Concomitant]
     Active Substance: LEVOTHYROXINE SODIUM
  12. HYDROCORTISONE [Concomitant]
     Active Substance: HYDROCORTISONE
     Dosage: GRAM
  13. FLONASE ALLERGY RELIEF [Concomitant]
     Active Substance: FLUTICASONE PROPIONATE
  14. COLACE [Concomitant]
     Active Substance: DOCUSATE SODIUM
  15. CYCLOSPORINE MODIFIED [Concomitant]
     Active Substance: CYCLOSPORINE
  16. CLONIDINE HYDROCHLORIDE [Concomitant]
     Active Substance: CLONIDINE HYDROCHLORIDE
  17. CELEXA [Concomitant]
     Active Substance: CITALOPRAM HYDROBROMIDE
  18. CARVEDILOL [Concomitant]
     Active Substance: CARVEDILOL
  19. CALCIUM ACETATE [Concomitant]
     Active Substance: CALCIUM ACETATE
  20. ASPIRIN [Concomitant]
     Active Substance: ASPIRIN
  21. ELIQUIS [Concomitant]
     Active Substance: APIXABAN
  22. XANAX [Concomitant]
     Active Substance: ALPRAZOLAM
  23. ALBUTEROL SULFATE [Concomitant]
     Active Substance: ALBUTEROL SULFATE
  24. ACYCLOVIR [Concomitant]
     Active Substance: ACYCLOVIR

REACTIONS (13)
  - Swollen tongue [Unknown]
  - Skin discolouration [Unknown]
  - Pharyngeal swelling [Unknown]
  - Dyspnoea [Unknown]
  - Wheezing [Unknown]
  - Dizziness [Unknown]
  - Dizziness [Unknown]
  - Tachycardia [Unknown]
  - Nausea [Unknown]
  - Urticaria [Unknown]
  - Vomiting [Unknown]
  - Eye pain [Unknown]
  - Eyelid pain [Unknown]

NARRATIVE: CASE EVENT DATE: 20221103
